FAERS Safety Report 5512617-1 (Version None)
Quarter: 2007Q4

REPORT INFORMATION
  Report Type: 
  Country: None (occurrence: None)
  Receive Date: 20071112
  Receipt Date: 20071102
  Transmission Date: 20080405
  Serious: Yes (Other)
  Sender: FDA-Public Use
  Company Number: DE-ABBOTT-07P-062-0423320-00

PATIENT
  Sex: Male

DRUGS (6)
  1. HUMIRA [Suspect]
     Indication: RHEUMATOID ARTHRITIS
     Route: 058
     Dates: start: 20070801
  2. METHOTREXATE [Concomitant]
     Indication: RHEUMATOID ARTHRITIS
  3. ACETYLSALICYLIC ACID SRT [Concomitant]
     Indication: RHEUMATOID ARTHRITIS
  4. PREDNISOLONE [Concomitant]
     Indication: DRUG USE FOR UNKNOWN INDICATION
  5. METFORMIN [Concomitant]
     Indication: DRUG USE FOR UNKNOWN INDICATION
  6. SALUTEC [Concomitant]
     Indication: DRUG USE FOR UNKNOWN INDICATION

REACTIONS (3)
  - CARDIAC FAILURE [None]
  - DYSPNOEA [None]
  - PLEURAL EFFUSION [None]
